FAERS Safety Report 11865075 (Version 1)
Quarter: 2015Q4

REPORT INFORMATION
  Report Type: Spontaneous
  Country: US (occurrence: US)
  Receive Date: 20151223
  Receipt Date: 20151223
  Transmission Date: 20160305
  Serious: No
  Sender: FDA-Public Use
  Company Number: US-PFIZER INC-2015433298

PATIENT

DRUGS (1)
  1. LYRICA [Suspect]
     Active Substance: PREGABALIN
     Dosage: UNK

REACTIONS (8)
  - Weight increased [Unknown]
  - Neuropathy peripheral [Unknown]
  - Pain [Unknown]
  - Condition aggravated [Unknown]
  - Stress [Unknown]
  - Swelling [Unknown]
  - Malaise [Unknown]
  - Fibromyalgia [Unknown]
